FAERS Safety Report 7158208-0 (Version None)
Quarter: 2010Q4

REPORT INFORMATION
  Report Type: 
  Country: None (occurrence: None)
  Receive Date: 20101214
  Receipt Date: 20100322
  Transmission Date: 20110411
  Serious: No
  Sender: FDA-Public Use
  Company Number: US-ASTRAZENECA-2010SE12858

PATIENT
  Age: 58 Year
  Sex: Male
  Weight: 93 kg

DRUGS (4)
  1. CRESTOR [Suspect]
     Indication: BLOOD CHOLESTEROL INCREASED
     Route: 048
     Dates: start: 20100316
  2. TYZAC [Concomitant]
  3. TOPROL-XL [Concomitant]
  4. TECTURNER [Concomitant]

REACTIONS (3)
  - ANXIETY [None]
  - FATIGUE [None]
  - NERVOUSNESS [None]
